FAERS Safety Report 23196830 (Version 3)
Quarter: 2023Q4

REPORT INFORMATION
  Report Type: Spontaneous
  Country: CA (occurrence: CA)
  Receive Date: 20231117
  Receipt Date: 20231219
  Transmission Date: 20240110
  Serious: Yes (Other)
  Sender: FDA-Public Use
  Company Number: CA-PFIZER INC-202300190413

PATIENT
  Age: 55 Year
  Sex: Female

DRUGS (2)
  1. RUXIENCE [Suspect]
     Active Substance: RITUXIMAB-PVVR
     Indication: Microscopic polyangiitis
     Dosage: 500 MG, SINGLE X 1 DOSE
     Route: 042
     Dates: start: 20230511, end: 20230511
  2. RUXIENCE [Suspect]
     Active Substance: RITUXIMAB-PVVR
     Indication: Granulomatosis with polyangiitis
     Dosage: 500 MG, SINGLE X Q 6 MONTHS, NOT STARTED YET
     Route: 042

REACTIONS (5)
  - Immunoglobulins decreased [Unknown]
  - Vaginal infection [Not Recovered/Not Resolved]
  - Quality of life decreased [Unknown]
  - Malaise [Unknown]
  - Off label use [Unknown]

NARRATIVE: CASE EVENT DATE: 20230101
